FAERS Safety Report 21528499 (Version 4)
Quarter: 2025Q1

REPORT INFORMATION
  Report Type: Report from Study
  Country: AR (occurrence: AR)
  Receive Date: 20221031
  Receipt Date: 20250124
  Transmission Date: 20250409
  Serious: Yes (Other)
  Sender: GLAXOSMITHKLINE
  Company Number: AR-GLAXOSMITHKLINE-AR2022AMR155472

PATIENT

DRUGS (2)
  1. MEPOLIZUMAB [Suspect]
     Active Substance: MEPOLIZUMAB
     Indication: Asthma
     Dates: start: 20200114
  2. MEPOLIZUMAB [Suspect]
     Active Substance: MEPOLIZUMAB
     Indication: Asthma
     Dosage: 100 MG, MO
     Dates: start: 20250117

REACTIONS (9)
  - Asthmatic crisis [Not Recovered/Not Resolved]
  - Injection site pain [Recovered/Resolved]
  - Tachycardia [Not Recovered/Not Resolved]
  - Respiratory disorder [Unknown]
  - Arteriosclerosis [Unknown]
  - Fear [Not Recovered/Not Resolved]
  - Injection site swelling [Unknown]
  - Product administration error [Unknown]
  - Wrong technique in device usage process [Unknown]

NARRATIVE: CASE EVENT DATE: 20221025
